FAERS Safety Report 23428793 (Version 4)
Quarter: 2024Q2

REPORT INFORMATION
  Report Type: Spontaneous
  Country: US (occurrence: US)
  Receive Date: 20240122
  Receipt Date: 20240611
  Transmission Date: 20240715
  Serious: Yes (Hospitalization, Other)
  Sender: FDA-Public Use
  Company Number: US-BIOGEN-2023BI01237547

PATIENT
  Sex: Male

DRUGS (3)
  1. SKYCLARYS [Suspect]
     Active Substance: OMAVELOXOLONE
     Indication: Friedreich^s ataxia
     Route: 050
  2. SKYCLARYS [Suspect]
     Active Substance: OMAVELOXOLONE
     Dosage: 150MG BY MOUTH ONCE DAILY
     Route: 050
     Dates: start: 20230706
  3. SKYCLARYS [Suspect]
     Active Substance: OMAVELOXOLONE
     Route: 050
     Dates: start: 20230703

REACTIONS (8)
  - Pneumonia [Recovered/Resolved]
  - Sleep apnoea syndrome [Unknown]
  - Cardiac failure [Unknown]
  - Diarrhoea [Unknown]
  - Tremor [Unknown]
  - Abdominal discomfort [Unknown]
  - Dyspepsia [Unknown]
  - Myalgia [Unknown]
